FAERS Safety Report 20421214 (Version 1)
Quarter: 2022Q1

REPORT INFORMATION
  Report Type: Spontaneous
  Country: SE (occurrence: SE)
  Receive Date: 20220203
  Receipt Date: 20220203
  Transmission Date: 20220424
  Serious: Yes (Disabling)
  Sender: FDA-Public Use
  Company Number: None

PATIENT
  Sex: Female
  Weight: 62 kg

DRUGS (1)
  1. PROTOPIC [Suspect]
     Active Substance: TACROLIMUS
     Indication: Dermatitis atopic
     Dosage: ONCE A DAY IN CASE OF MAJOR OUTBREAKS AND OUT PHASING TO 1-2 TIMES A WEEK, THEN MAINTENANCE
     Route: 061

REACTIONS (5)
  - Swelling face [Not Recovered/Not Resolved]
  - Skin warm [Not Recovered/Not Resolved]
  - Inappropriate schedule of product administration [Unknown]
  - Skin atrophy [Not Recovered/Not Resolved]
  - Erythema [Not Recovered/Not Resolved]
